FAERS Safety Report 18336712 (Version 1)
Quarter: 2020Q4

REPORT INFORMATION
  Report Type: Spontaneous
  Country: CN (occurrence: CN)
  Receive Date: 20201001
  Receipt Date: 20201001
  Transmission Date: 20210113
  Serious: Yes (Other)
  Sender: FDA-Public Use
  Company Number: CN-PURDUE-GBR-2020-0077684

PATIENT
  Age: 56 Year
  Sex: Female
  Weight: 55 kg

DRUGS (2)
  1. MS CONTIN [Suspect]
     Active Substance: MORPHINE SULFATE
     Indication: CACHEXIA
     Dosage: 10 MG, BID
     Route: 048
     Dates: start: 20200530, end: 20200531
  2. MS CONTIN [Suspect]
     Active Substance: MORPHINE SULFATE
     Indication: CACHEXIA

REACTIONS (5)
  - Rash [Recovering/Resolving]
  - Dysphonia [Recovering/Resolving]
  - Chest discomfort [Recovering/Resolving]
  - Laryngeal oedema [Recovering/Resolving]
  - Laryngeal discomfort [Recovering/Resolving]

NARRATIVE: CASE EVENT DATE: 20200530
